FAERS Safety Report 11873419 (Version 4)
Quarter: 2016Q1

REPORT INFORMATION
  Report Type: Spontaneous
  Country: US (occurrence: US)
  Receive Date: 20151228
  Receipt Date: 20160311
  Transmission Date: 20160526
  Serious: Yes (Hospitalization)
  Sender: FDA-Public Use
  Company Number: US-ACTELION-A-NJ2015-128882

PATIENT
  Age: 22 Year
  Sex: Female

DRUGS (3)
  1. VELETRI [Suspect]
     Active Substance: EPOPROSTENOL
     Indication: PULMONARY HYPERTENSION
     Dosage: 19 NG/KG, PER MIN
     Route: 042
     Dates: start: 20150720
  2. ADCIRCA [Concomitant]
     Active Substance: TADALAFIL
  3. LETAIRIS [Concomitant]
     Active Substance: AMBRISENTAN

REACTIONS (8)
  - Device dislocation [Unknown]
  - Central venous catheter removal [Unknown]
  - Diarrhoea [Unknown]
  - Complication associated with device [Unknown]
  - Thrombosis [Unknown]
  - Device related infection [Unknown]
  - Nausea [Unknown]
  - Catheter site discharge [Unknown]
